FAERS Safety Report 7561113-9 (Version None)
Quarter: 2011Q2

REPORT INFORMATION
  Report Type: 
  Country: None (occurrence: None)
  Receive Date: 20110621
  Receipt Date: 20110620
  Transmission Date: 20111010
  Serious: Yes (Hospitalization)
  Sender: FDA-Public Use
  Company Number: DE-NAPPMUNDI-DEU-2010-0005957

PATIENT

DRUGS (1)
  1. MORPHINE SULFATE [Suspect]
     Indication: DRUG DEPENDENCE
     Dosage: 600 MG, DAILY
     Route: 048
     Dates: start: 20100215

REACTIONS (1)
  - DYSPNOEA [None]
